FAERS Safety Report 8797029 (Version 2)
Quarter: 2012Q4

REPORT INFORMATION
  Report Type: 
  Country: US (occurrence: US)
  Receive Date: 20120919
  Receipt Date: 20121108
  Transmission Date: 20130627
  Serious: Yes (Other)
  Sender: FDA-Public Use
  Company Number: US-GLAXOSMITHKLINE-A0993697A

PATIENT
  Age: 4 Year
  Sex: Male
  Weight: 33.2 kg

DRUGS (8)
  1. LAMICTAL [Suspect]
     Indication: EPILEPSY
     Route: 065
     Dates: start: 2006
  2. ZONISAMIDE [Suspect]
     Indication: EPILEPSY
     Route: 065
     Dates: start: 2006
  3. DIET [Suspect]
     Indication: CONVULSION PROPHYLAXIS
     Dates: start: 2007, end: 201108
  4. MIRALAX [Concomitant]
  5. CALCIUM SUPPLEMENT [Concomitant]
  6. SELENIUM [Concomitant]
     Indication: SUPPLEMENTATION THERAPY
  7. MULTIVITAMINS [Concomitant]
     Indication: SUPPLEMENTATION THERAPY
  8. POTASSIUM CITRATE [Concomitant]
     Indication: SUPPLEMENTATION THERAPY

REACTIONS (6)
  - Convulsion [Unknown]
  - Petit mal epilepsy [Unknown]
  - Atonic seizures [Unknown]
  - Dyskinesia [Unknown]
  - Growth retardation [Unknown]
  - Therapeutic response decreased [Unknown]
